FAERS Safety Report 7036969-9 (Version None)
Quarter: 2010Q4

REPORT INFORMATION
  Report Type: 
  Country: None (occurrence: None)
  Receive Date: 20101011
  Receipt Date: 20101006
  Transmission Date: 20110411
  Serious: Yes (Life-Threatening)
  Sender: FDA-Public Use
  Company Number: FR-WYE-G06773110

PATIENT
  Sex: Male
  Weight: 5.9 kg

DRUGS (3)
  1. PIPERACILLIN AND TAZOBACTAM [Suspect]
     Indication: INFECTION PROPHYLAXIS
     Dosage: UNKNOWN
     Route: 042
     Dates: start: 20091228
  2. SODIUM CHLORIDE [Suspect]
     Dosage: 3 G OF NACL IN 250 ML (OF GLUCOSE 5%), INSTEAD OF PRESCRIBED 3 G/L OF NACL IN 250 ML (OF GLUCOSE 5%)
     Route: 051
     Dates: start: 20091228, end: 20091228
  3. NOXAFIL [Concomitant]
     Indication: ANTIFUNGAL PROPHYLAXIS
     Dosage: UNKNOWN
     Route: 042
     Dates: start: 20091228

REACTIONS (4)
  - ACCIDENTAL OVERDOSE [None]
  - CONVULSION [None]
  - HYPERNATRAEMIA [None]
  - INCORRECT DOSE ADMINISTERED [None]
